FAERS Safety Report 8793023 (Version 1)
Quarter: 2012Q4

REPORT INFORMATION
  Report Type: 
  Country: US (occurrence: US)
  Receive Date: 20120918
  Receipt Date: 20120918
  Transmission Date: 20130627
  Serious: No
  Sender: FDA-Public Use
  Company Number: US-009507513-2012SP017490

PATIENT

DRUGS (5)
  1. MIRALAX [Suspect]
     Indication: CONSTIPATION
     Dosage: 17 g, BID
     Route: 048
     Dates: start: 201112
  2. MIRALAX [Suspect]
     Indication: MEDICAL OBSERVATION
  3. AMITIZA [Concomitant]
     Indication: CONSTIPATION
  4. METAMUCIL [Concomitant]
     Indication: CONSTIPATION
  5. SUMATRIPTAN [Concomitant]
     Indication: MIGRAINE

REACTIONS (2)
  - Overdose [Unknown]
  - Incorrect drug administration duration [Unknown]
